FAERS Safety Report 5341985-9 (Version None)
Quarter: 2007Q2

REPORT INFORMATION
  Report Type: 
  Country: None (occurrence: None)
  Receive Date: 20070530
  Receipt Date: 20070530
  Transmission Date: 20071010
  Serious: Yes (Hospitalization)
  Sender: FDA-Public Use
  Company Number: None

PATIENT
  Sex: Male
  Weight: 88.4 kg

DRUGS (6)
  1. SUNITINIB [Suspect]
     Indication: RENAL CANCER METASTATIC
     Dosage: 50 MG QDX28 DAYS ORAL
     Route: 048
     Dates: start: 20070314
  2. IRON COMPLEX [Concomitant]
  3. CONTIN [Concomitant]
  4. PEPCID [Concomitant]
  5. COMPAZINE [Concomitant]
  6. PERCOCET [Concomitant]

REACTIONS (2)
  - HAEMATURIA [None]
  - RENAL MASS [None]
